FAERS Safety Report 11528662 (Version 2)
Quarter: 2015Q4

REPORT INFORMATION
  Report Type: Report from Study
  Country: AR (occurrence: AR)
  Receive Date: 20150921
  Receipt Date: 20151010
  Transmission Date: 20160304
  Serious: Yes (Other)
  Sender: FDA-Public Use
  Company Number: PHHY2015AR112084

PATIENT
  Sex: Female

DRUGS (1)
  1. EXFORGE [Suspect]
     Active Substance: AMLODIPINE BESYLATE\VALSARTAN
     Indication: BLOOD PRESSURE ABNORMAL
     Dosage: 1.5 DF, QD
     Route: 065

REACTIONS (5)
  - Wrong technique in product usage process [Unknown]
  - Ocular hyperaemia [Recovering/Resolving]
  - Conjunctival haemorrhage [Recovering/Resolving]
  - Blood pressure increased [Recovering/Resolving]
  - Intraocular pressure increased [Recovering/Resolving]
